FAERS Safety Report 4684679-5 (Version None)
Quarter: 2005Q2

REPORT INFORMATION
  Report Type: 
  Country: None (occurrence: None)
  Receive Date: 20050603
  Receipt Date: 20050524
  Transmission Date: 20051028
  Serious: Yes (Other)
  Sender: FDA-Public Use
  Company Number: 2005078549

PATIENT
  Age: 13 Year
  Sex: Male
  Weight: 54.4316 kg

DRUGS (3)
  1. BENADRYL [Suspect]
     Dosage: 24 KAPSEALS ONCE, ORAL
     Route: 048
     Dates: start: 20050524, end: 20050524
  2. METHYLPHENIDATE HCL [Concomitant]
  3. OPIUM ALKALOIDS TOTAL (OPIUM ALKALOIDS TOTAL) [Concomitant]

REACTIONS (2)
  - HALLUCINATION, VISUAL [None]
  - OVERDOSE [None]
